FAERS Safety Report 21374548 (Version 3)
Quarter: 2022Q4

REPORT INFORMATION
  Report Type: Spontaneous
  Country: US (occurrence: US)
  Receive Date: 20220926
  Receipt Date: 20221213
  Transmission Date: 20230112
  Serious: Yes (Other)
  Sender: FDA-Public Use
  Company Number: US-ALLERGAN-2225689US

PATIENT
  Age: 73 Year
  Sex: Female

DRUGS (2)
  1. DURYSTA [Suspect]
     Active Substance: BIMATOPROST
     Indication: Open angle glaucoma
     Dosage: 0.01 MG, SINGLE
     Route: 031
     Dates: start: 20220505, end: 20220505
  2. DURYSTA [Suspect]
     Active Substance: BIMATOPROST
     Indication: Open angle glaucoma
     Dosage: 0.01 MG, SINGLE
     Route: 031
     Dates: start: 20220420, end: 20220804

REACTIONS (12)
  - Cystoid macular oedema [Not Recovered/Not Resolved]
  - Cystoid macular oedema [Not Recovered/Not Resolved]
  - Subretinal fluid [Not Recovered/Not Resolved]
  - Visual impairment [Recovering/Resolving]
  - Intraocular pressure decreased [Recovered/Resolved]
  - Eye pain [Unknown]
  - Anterior chamber cell [Not Recovered/Not Resolved]
  - Anterior chamber flare [Not Recovered/Not Resolved]
  - Anterior chamber cell [Not Recovered/Not Resolved]
  - Anterior chamber flare [Not Recovered/Not Resolved]
  - Intraocular pressure increased [Unknown]
  - Uveitis [Unknown]

NARRATIVE: CASE EVENT DATE: 20220721
